FAERS Safety Report 25952279 (Version 1)
Quarter: 2025Q4

REPORT INFORMATION
  Report Type: Spontaneous
  Country: US (occurrence: US)
  Receive Date: 20251023
  Receipt Date: 20251023
  Transmission Date: 20260118
  Serious: No
  Sender: ROCHE
  Company Number: US-ROCHE-10000411358

PATIENT
  Age: 47 Year
  Sex: Female
  Weight: 63.5 kg

DRUGS (1)
  1. XOLAIR [Suspect]
     Active Substance: OMALIZUMAB
     Indication: Urticaria
     Dosage: STRENGTH: 300 MG. START DATE: FEB-2025 OR MAR-2025
     Route: 058

REACTIONS (4)
  - Exposure via skin contact [Unknown]
  - Product use complaint [Unknown]
  - No adverse event [Unknown]
  - Device leakage [Unknown]

NARRATIVE: CASE EVENT DATE: 20251011
